FAERS Safety Report 5638002-X (Version None)
Quarter: 2008Q1

REPORT INFORMATION
  Report Type: 
  Country: None (occurrence: None)
  Receive Date: 20080226
  Receipt Date: 20080213
  Transmission Date: 20080703
  Serious: Yes (Death, Other)
  Sender: FDA-Public Use
  Company Number: PT-JNJFOC-20080102976

PATIENT
  Age: 41 Year
  Sex: Female

DRUGS (5)
  1. REMICADE [Suspect]
     Route: 042
  2. REMICADE [Suspect]
     Dosage: EVERY 8 TO 10 WEEKS
     Route: 042
  3. REMICADE [Suspect]
     Route: 042
  4. REMICADE [Suspect]
     Dosage: WEEKS 2 AND 6
     Route: 042
  5. REMICADE [Suspect]
     Indication: ANKYLOSING SPONDYLITIS
     Dosage: WEEK 0
     Route: 042

REACTIONS (2)
  - METASTASIS [None]
  - SALIVARY GLAND CANCER [None]
